FAERS Safety Report 8368402-9 (Version None)
Quarter: 2012Q2

REPORT INFORMATION
  Report Type: 
  Country: None (occurrence: None)
  Receive Date: 20120517
  Receipt Date: 20120508
  Transmission Date: 20120825
  Serious: Yes (Other)
  Sender: FDA-Public Use
  Company Number: US-ELI_LILLY_AND_COMPANY-US201106001589

PATIENT
  Sex: Female

DRUGS (6)
  1. FORTEO [Suspect]
     Dosage: 20 UG, QD
     Route: 065
  2. FORTEO [Suspect]
     Dosage: 20 UG, QD
     Route: 065
  3. FORTEO [Suspect]
     Dosage: 20 UG, QD
  4. FORTEO [Suspect]
     Indication: LOWER LIMB FRACTURE
     Dosage: 20 UG, QD
     Route: 065
     Dates: start: 20110505
  5. FORTEO [Suspect]
     Dosage: 20 UG, QD
     Route: 065
  6. CALCIUM [Concomitant]

REACTIONS (7)
  - MEDICAL DEVICE REMOVAL [None]
  - BONE DISORDER [None]
  - BLOOD CALCIUM INCREASED [None]
  - OFF LABEL USE [None]
  - DIZZINESS POSTURAL [None]
  - MUSCLE SPASMS [None]
  - HEART RATE INCREASED [None]
